FAERS Safety Report 10201676 (Version 1)
Quarter: 2014Q2

REPORT INFORMATION
  Report Type: Spontaneous
  Country: US (occurrence: US)
  Receive Date: 20140528
  Receipt Date: 20140528
  Transmission Date: 20141212
  Serious: No
  Sender: FDA-Public Use
  Company Number: US-009507513-1405USA010807

PATIENT
  Age: 21 Year
  Sex: Female
  Weight: 65.77 kg

DRUGS (1)
  1. NEXPLANON [Suspect]
     Indication: CONTRACEPTION
     Dosage: 1 ROD UPTO 3 YEARS,ROUTE : RIGHT ARM
     Route: 059
     Dates: start: 20140322

REACTIONS (2)
  - Haemorrhage [Unknown]
  - Headache [Unknown]
